FAERS Safety Report 17871931 (Version 1)
Quarter: 2020Q2

REPORT INFORMATION
  Report Type: Spontaneous
  Country: US (occurrence: US)
  Receive Date: 20200608
  Receipt Date: 20200608
  Transmission Date: 20200714
  Serious: No
  Sender: FDA-Public Use
  Company Number: US-KRAMERLABS-2019-US-017026

PATIENT
  Age: 73 Year
  Sex: Female
  Weight: 52.16 kg

DRUGS (6)
  1. NIZORAL A-D [Suspect]
     Active Substance: KETOCONAZOLE
     Indication: ALOPECIA
     Dosage: TWICE WEEKLY, DECREASE TO ONCE WEEKLY
     Route: 061
     Dates: start: 201906, end: 20190904
  2. CALCIUM [Concomitant]
     Active Substance: CALCIUM
  3. VITAMIN D3 [Concomitant]
     Active Substance: CHOLECALCIFEROL
  4. PROLIA [Concomitant]
     Active Substance: DENOSUMAB
  5. MULTIVITAMIN [Concomitant]
     Active Substance: VITAMINS
  6. UNSPECIFIED EYE DROPS [Concomitant]
     Active Substance: UNSPECIFIED INGREDIENT

REACTIONS (5)
  - Condition aggravated [Not Recovered/Not Resolved]
  - Intentional product misuse [Recovered/Resolved]
  - Eye irritation [Recovered/Resolved]
  - Alopecia [Not Recovered/Not Resolved]
  - Product use in unapproved indication [Recovered/Resolved]

NARRATIVE: CASE EVENT DATE: 201906
